FAERS Safety Report 5247173-9 (Version None)
Quarter: 2007Q1

REPORT INFORMATION
  Report Type: 
  Country: None (occurrence: None)
  Receive Date: 20070221
  Receipt Date: 20070212
  Transmission Date: 20070707
  Serious: Yes (Other)
  Sender: FDA-Public Use
  Company Number: 230381K07USA

PATIENT
  Age: 35 Year
  Sex: Female
  Weight: 90.7194 kg

DRUGS (8)
  1. REBIF [Suspect]
     Indication: MULTIPLE SCLEROSIS
     Dosage: 44 MCG, 3 IN 1 WEEKS, SUBCUTANEOUS
     Route: 058
     Dates: start: 20060106
  2. STEROIDS (CORTICOSTEROIDS) [Suspect]
     Dosage: INTRAVENOUS (NOT OTHERWISE SPECIFIED)
     Dates: start: 20061001
  3. NOVANTRONE [Concomitant]
  4. KLONOPIN [Concomitant]
  5. LYRICA [Concomitant]
  6. DEPAKOTE [Concomitant]
  7. HYDROCODONE (HYDROCODONE) [Concomitant]
  8. AMITRIPTYLINE HCL [Concomitant]

REACTIONS (8)
  - ANXIETY [None]
  - DIABETES MELLITUS [None]
  - HEPATIC ENZYME INCREASED [None]
  - INJECTION SITE BRUISING [None]
  - INJECTION SITE HAEMORRHAGE [None]
  - MULTIPLE SCLEROSIS [None]
  - PAPILLOMA VIRAL INFECTION [None]
  - POLLAKIURIA [None]
